FAERS Safety Report 8974767 (Version 3)
Quarter: 2012Q4

REPORT INFORMATION
  Report Type: 
  Country: JP (occurrence: JP)
  Receive Date: 20121219
  Receipt Date: 20121226
  Transmission Date: 20130627
  Serious: Yes (Other)
  Sender: FDA-Public Use
  Company Number: JP-PFIZER INC-2012319293

PATIENT
  Age: 5 None
  Sex: Female
  Weight: 40 kg

DRUGS (1)
  1. LYRICA [Suspect]
     Indication: HERPES ZOSTER
     Dosage: 150 mg, 1x/day
     Route: 048
     Dates: start: 20121213

REACTIONS (1)
  - Drug-induced liver injury [Unknown]
